FAERS Safety Report 9926085 (Version 2)
Quarter: 2014Q2

REPORT INFORMATION
  Report Type: Report from Study
  Country: US (occurrence: US)
  Receive Date: 20140226
  Receipt Date: 20140408
  Transmission Date: 20141212
  Serious: Yes (Hospitalization)
  Sender: FDA-Public Use
  Company Number: US-ELI_LILLY_AND_COMPANY-US201402004166

PATIENT
  Sex: Female
  Weight: 42.63 kg

DRUGS (16)
  1. NECITUMUMAB (11F8) (LY3012211) [Suspect]
     Indication: BREAST CANCER METASTATIC
     Dosage: 400 MG, CYCLICAL
     Route: 042
     Dates: start: 20131009, end: 20140121
  2. GEMCITABINE HYDROCHLORIDE [Suspect]
     Indication: BREAST CANCER METASTATIC
     Dosage: 625 MG/M2, CYCLICAL
     Route: 042
     Dates: start: 20131007, end: 20140121
  3. CISPLATIN [Suspect]
     Indication: BREAST CANCER METASTATIC
     Dosage: 38 MG/M2, CYCLICAL
     Route: 042
     Dates: start: 20131007, end: 20140121
  4. AMLODIPINE BESYLATE [Concomitant]
     Dosage: UNK, EACH EVENING
  5. LORAZEPAM [Concomitant]
     Dosage: 0.5 MG, BID
     Route: 048
  6. BYSTOLIC [Concomitant]
     Dosage: 10 MG, BID
     Route: 048
  7. CLONIDINE [Concomitant]
     Dosage: 0.1 MG, QD
     Route: 048
  8. DEXAMETHASONE [Concomitant]
     Dosage: 4 MG, QD
  9. NEUPOGEN [Concomitant]
     Dosage: 300 UG, UNK
     Route: 030
  10. ACETAMINOPHEN [Concomitant]
     Dosage: 500 MG, PRN
     Route: 048
     Dates: start: 201206
  11. CLARITIN [Concomitant]
     Dosage: 10 MG, PRN
     Route: 048
     Dates: start: 20131029
  12. COLACE [Concomitant]
     Dosage: 100 MG, PRN
     Route: 048
     Dates: start: 20131029
  13. HYDROMORPHONE HYDROCHLORIDE [Concomitant]
     Dosage: 4 MG, PRN
     Route: 048
     Dates: start: 201304
  14. HYDROXYZINE HYDROCHLORIDE [Concomitant]
     Dosage: 25 MG, PRN
     Route: 048
     Dates: start: 20140114
  15. OMEPRAZOLE [Concomitant]
     Dosage: 1 DF, QD
     Route: 048
     Dates: start: 20130819
  16. OXYCONTIN [Concomitant]
     Dosage: 1 UNK, UNK
     Route: 048
     Dates: start: 20120809

REACTIONS (1)
  - Cerebral ischaemia [Recovered/Resolved]
